FAERS Safety Report 9723109 (Version 2)
Quarter: 2014Q1

REPORT INFORMATION
  Report Type: Report from Study
  Country: DE (occurrence: DE)
  Receive Date: 20131202
  Receipt Date: 20140305
  Transmission Date: 20141002
  Serious: Yes (Hospitalization)
  Sender: FDA-Public Use
  Company Number: DE-ABBVIE-13P-062-1173759-00

PATIENT
  Age: 36 Year
  Sex: Female

DRUGS (2)
  1. HUMIRA [Suspect]
     Indication: PSORIASIS
     Route: 058
     Dates: start: 20080101, end: 20131031
  2. HUMIRA [Suspect]
     Route: 058
     Dates: start: 20140221

REACTIONS (2)
  - Anxiety disorder [Recovering/Resolving]
  - Panic attack [Recovering/Resolving]
